FAERS Safety Report 9186328 (Version 1)
Quarter: 2013Q1

REPORT INFORMATION
  Report Type: Spontaneous
  Country: NL (occurrence: NL)
  Receive Date: 20130325
  Receipt Date: 20130325
  Transmission Date: 20140127
  Serious: Yes (Hospitalization)
  Sender: FDA-Public Use
  Company Number: NL-MYLANLABS-2013S1005717

PATIENT
  Age: 63 Year
  Sex: Female

DRUGS (6)
  1. PREDNISOLONE [Suspect]
     Indication: TAKAYASU^S ARTERITIS
     Route: 065
  2. METHOTREXATE [Suspect]
     Indication: TAKAYASU^S ARTERITIS
     Route: 065
  3. AZATHIOPRINE [Suspect]
     Indication: TAKAYASU^S ARTERITIS
     Route: 065
  4. INFLIXIMAB [Suspect]
     Indication: TAKAYASU^S ARTERITIS
     Route: 065
  5. TOCILIZUMAB [Suspect]
     Indication: TAKAYASU^S ARTERITIS
     Dosage: 8 MG/KG MONTHLY
     Route: 050
  6. PREDNISONE [Suspect]
     Indication: TAKAYASU^S ARTERITIS
     Route: 065

REACTIONS (4)
  - Lung abscess [Recovered/Resolved]
  - Streptococcal infection [Recovered/Resolved]
  - Gastrointestinal disorder [Unknown]
  - Tooth abscess [Recovered/Resolved]
